FAERS Safety Report 5136676-3 (Version None)
Quarter: 2006Q4

REPORT INFORMATION
  Report Type: 
  Country: None (occurrence: None)
  Receive Date: 20061023
  Receipt Date: 20061016
  Transmission Date: 20070319
  Serious: Yes (Death, Hospitalization)
  Sender: FDA-Public Use
  Company Number: 163-20785-06090053

PATIENT
  Age: 48 Year
  Sex: Female

DRUGS (11)
  1. THALOMID [Suspect]
     Indication: MULTIPLE MYELOMA
     Dosage: SEE IMAGE
     Route: 048
     Dates: start: 20060712, end: 20060720
  2. THALOMID [Suspect]
     Indication: MULTIPLE MYELOMA
     Dosage: SEE IMAGE
     Route: 048
     Dates: start: 20060721, end: 20060830
  3. DECARON (DEXAMETHASONE) [Concomitant]
  4. PRILOSEC [Concomitant]
  5. POTASSIUM (POTASSIUM) [Concomitant]
  6. LASIX [Concomitant]
  7. ASPIRIN [Concomitant]
  8. ZOMETA [Concomitant]
  9. DARVOCET-N 50 [Concomitant]
  10. GLUCOPHAGE [Concomitant]
  11. PROCRIT [Concomitant]

REACTIONS (8)
  - ANAEMIA [None]
  - BACTERIAL SEPSIS [None]
  - GRANULOCYTOPENIA [None]
  - OEDEMA PERIPHERAL [None]
  - PULMONARY EMBOLISM [None]
  - RENAL FAILURE [None]
  - RESPIRATORY FAILURE [None]
  - SEPTIC SHOCK [None]
